FAERS Safety Report 25932470 (Version 1)
Quarter: 2025Q4

REPORT INFORMATION
  Report Type: Report from Study
  Country: US (occurrence: US)
  Receive Date: 20251017
  Receipt Date: 20251017
  Transmission Date: 20260118
  Serious: Yes (Other)
  Sender: ABBVIE
  Company Number: US-ABBVIE-6502880

PATIENT
  Age: 70 Year
  Sex: Female

DRUGS (1)
  1. IMBRUVICA [Suspect]
     Active Substance: IBRUTINIB
     Indication: Waldenstrom^s macroglobulinaemia
     Route: 048
     Dates: start: 202308

REACTIONS (10)
  - Neoplasm malignant [Unknown]
  - Immunoglobulins abnormal [Unknown]
  - Depression [Unknown]
  - Platelet disorder [Recovering/Resolving]
  - Emotional disorder [Unknown]
  - Asthenia [Unknown]
  - Rash [Not Recovered/Not Resolved]
  - Rash [Unknown]
  - Urticaria [Unknown]
  - Rash papular [Unknown]

NARRATIVE: CASE EVENT DATE: 20250101
